FAERS Safety Report 19928858 (Version 3)
Quarter: 2021Q4

REPORT INFORMATION
  Report Type: Spontaneous
  Country: UA (occurrence: UA)
  Receive Date: 20211007
  Receipt Date: 20211018
  Transmission Date: 20220303
  Serious: Yes (Hospitalization)
  Sender: FDA-Public Use
  Company Number: UA-MERZ PHARMACEUTICALS GMBH-21-03515

PATIENT
  Age: 44 Year
  Sex: Female

DRUGS (2)
  1. XEOMIN [Suspect]
     Active Substance: INCOBOTULINUMTOXINA
     Indication: Skin cosmetic procedure
     Dates: start: 20210304, end: 20210304
  2. XEOMIN [Suspect]
     Active Substance: INCOBOTULINUMTOXINA
     Dates: start: 20210325, end: 20210325

REACTIONS (12)
  - Status epilepticus [Unknown]
  - Encephalopathy [Unknown]
  - Hypoxia [Unknown]
  - Cortical laminar necrosis [Unknown]
  - Brain oedema [Unknown]
  - Pneumonia [Recovered/Resolved]
  - Acute respiratory failure [Unknown]
  - Septic shock [Unknown]
  - Anaemia [Unknown]
  - Coronavirus infection [Recovered/Resolved]
  - Vomiting [Unknown]
  - Nausea [Unknown]

NARRATIVE: CASE EVENT DATE: 20210101
